FAERS Safety Report 7145204-2 (Version None)
Quarter: 2010Q4

REPORT INFORMATION
  Report Type: 
  Country: None (occurrence: None)
  Receive Date: 20101208
  Receipt Date: 20101129
  Transmission Date: 20110411
  Serious: Yes (Life-Threatening)
  Sender: FDA-Public Use
  Company Number: IT-MPIJNJ-2010-05679

PATIENT

DRUGS (4)
  1. VELCADE [Suspect]
     Indication: MULTIPLE MYELOMA
     Dosage: 2.1 MG, CYCLIC
     Route: 042
     Dates: start: 20100703, end: 20101021
  2. SOLDESAM [Concomitant]
  3. ESOPRAL                            /01479301/ [Concomitant]
     Dosage: UNK
  4. DILATREND [Concomitant]

REACTIONS (1)
  - DEEP VEIN THROMBOSIS [None]
